FAERS Safety Report 23966442 (Version 1)
Quarter: 2024Q2

REPORT INFORMATION
  Report Type: Spontaneous
  Country: KR (occurrence: KR)
  Receive Date: 20240612
  Receipt Date: 20240612
  Transmission Date: 20240716
  Serious: Yes (Hospitalization)
  Sender: FDA-Public Use
  Company Number: KR-SAMSUNG BIOEPIS-SB-2024-17517

PATIENT
  Sex: Female

DRUGS (1)
  1. ADALIMUMAB [Suspect]
     Active Substance: ADALIMUMAB\ISOPROPYL ALCOHOL
     Indication: Gastrointestinal inflammation
     Dosage: FIRST AND THIRD WEEKS OF APRIL, AND ON THE FIRST AND THIRD WEEKS OF MAY
     Route: 065
     Dates: start: 202404

REACTIONS (9)
  - Muscular weakness [Unknown]
  - Decreased appetite [Unknown]
  - Asthenia [Unknown]
  - Eating disorder symptom [Unknown]
  - Fatigue [Unknown]
  - Weight decreased [Unknown]
  - Injection site pain [Unknown]
  - Behcet^s syndrome [Unknown]
  - Product use in unapproved indication [Unknown]
